FAERS Safety Report 5306623-X (Version None)
Quarter: 2007Q2

REPORT INFORMATION
  Report Type: 
  Country: None (occurrence: None)
  Receive Date: 20070424
  Receipt Date: 20070413
  Transmission Date: 20071010
  Serious: Yes (Death, Other)
  Sender: FDA-Public Use
  Company Number: JP-PFIZER INC-2007024489

PATIENT
  Sex: Male
  Weight: 58 kg

DRUGS (8)
  1. ZYVOX [Suspect]
     Indication: STAPHYLOCOCCAL INFECTION
     Route: 048
     Dates: start: 20070316, end: 20070321
  2. ZYVOX [Suspect]
     Route: 048
     Dates: start: 20070324, end: 20070326
  3. MARZULENE [Concomitant]
     Route: 048
  4. MIYARISAN BM [Concomitant]
     Route: 048
  5. PHELLOBERIN A [Concomitant]
     Route: 048
  6. LASIX [Concomitant]
  7. TAKEPRON [Concomitant]
     Route: 048
  8. VANCOMYCIN [Concomitant]
     Route: 042
     Dates: start: 20070315, end: 20070316

REACTIONS (2)
  - PLATELET COUNT DECREASED [None]
  - SEPSIS [None]
